FAERS Safety Report 6773570-6 (Version None)
Quarter: 2010Q2

REPORT INFORMATION
  Report Type: 
  Country: None (occurrence: None)
  Receive Date: 20100611
  Receipt Date: 20100604
  Transmission Date: 20101027
  Serious: Yes (Other)
  Sender: FDA-Public Use
  Company Number: 2010SP031536

PATIENT
  Age: 34 Year
  Sex: Female
  Weight: 61.2356 kg

DRUGS (5)
  1. NUVARING [Suspect]
     Indication: DRUG USE FOR UNKNOWN INDICATION
     Dosage: ; VAG
     Route: 067
     Dates: start: 20091209, end: 20100525
  2. NUVARING [Suspect]
     Indication: DRUG USE FOR UNKNOWN INDICATION
     Dosage: ; VAG
     Route: 067
     Dates: start: 20100525, end: 20100525
  3. NUVARING [Suspect]
     Indication: DRUG USE FOR UNKNOWN INDICATION
     Dosage: ; VAG
     Route: 067
     Dates: start: 20100525, end: 20100525
  4. NUVARING [Suspect]
     Indication: DRUG USE FOR UNKNOWN INDICATION
     Dosage: ; VAG
     Route: 067
     Dates: start: 20100525
  5. EFFEXOR [Concomitant]

REACTIONS (5)
  - DYSPNOEA [None]
  - LIP SWELLING [None]
  - PRURITUS [None]
  - RASH [None]
  - SWOLLEN TONGUE [None]
